FAERS Safety Report 5647623-X (Version None)
Quarter: 2008Q1

REPORT INFORMATION
  Report Type: 
  Country: None (occurrence: None)
  Receive Date: 20080303
  Receipt Date: 20080220
  Transmission Date: 20080703
  Serious: Yes (Other)
  Sender: FDA-Public Use
  Company Number: FR-GENENTECH-256342

PATIENT

DRUGS (1)
  1. XOLAIR [Suspect]
     Indication: DRUG USE FOR UNKNOWN INDICATION
     Dosage: 375 MG, 2/WEEK
     Route: 058
     Dates: start: 20071001

REACTIONS (3)
  - BRONCHITIS [None]
  - PNEUMONIA PNEUMOCOCCAL [None]
  - SINUSITIS [None]
